FAERS Safety Report 8310593-X (Version None)
Quarter: 2012Q2

REPORT INFORMATION
  Report Type: 
  Country: None (occurrence: None)
  Receive Date: 20120425
  Receipt Date: 20120425
  Transmission Date: 20120825
  Serious: Yes (Other)
  Sender: FDA-Public Use
  Company Number: None

PATIENT
  Age: 33 Year
  Sex: Male
  Weight: 68.038 kg

DRUGS (1)
  1. PRILOSEC [Suspect]

REACTIONS (2)
  - MYOCLONUS [None]
  - MUSCLE CONTRACTIONS INVOLUNTARY [None]
